FAERS Safety Report 8173891-9 (Version None)
Quarter: 2012Q1

REPORT INFORMATION
  Report Type: 
  Country: None (occurrence: None)
  Receive Date: 20120229
  Receipt Date: 20120216
  Transmission Date: 20120608
  Serious: Yes (Life-Threatening, Hospitalization, Congenital Anomaly)
  Sender: FDA-Public Use
  Company Number: DE-ELI_LILLY_AND_COMPANY-DE201111000636

PATIENT

DRUGS (6)
  1. CYMBALTA [Suspect]
     Indication: DEPRESSION
     Dosage: 60 MG, QD
     Route: 064
     Dates: end: 20110201
  2. FOLSAURE [Concomitant]
     Dosage: UNK
     Route: 064
     Dates: start: 20110115
  3. TRIMIPRAMINE MALEATE [Concomitant]
     Dosage: 75 MG, QD
     Route: 064
     Dates: start: 20101218, end: 20110909
  4. FOLSAURE [Concomitant]
     Dosage: UNK
     Route: 064
     Dates: start: 20110115
  5. CYMBALTA [Suspect]
     Dosage: 60 MG, QD
     Route: 064
     Dates: end: 20110201
  6. TRIMIPRAMINE MALEATE [Concomitant]
     Indication: DEPRESSION
     Dosage: 75 MG, QD
     Route: 064
     Dates: start: 20101218, end: 20110909

REACTIONS (17)
  - CONGENITAL HYDROCEPHALUS [None]
  - BRADYCARDIA [None]
  - ARNOLD-CHIARI MALFORMATION [None]
  - CLEFT PALATE [None]
  - INFANTILE APNOEIC ATTACK [None]
  - ENCEPHALOCELE [None]
  - CAESAREAN SECTION [None]
  - APNOEA [None]
  - MICROGNATHIA [None]
  - POST PROCEDURAL COMPLICATION [None]
  - MICROCEPHALY [None]
  - HYPOVENTILATION NEONATAL [None]
  - BRADYCARDIA NEONATAL [None]
  - MATERNAL DRUGS AFFECTING FOETUS [None]
  - CONGENITAL CENTRAL NERVOUS SYSTEM ANOMALY [None]
  - PIERRE ROBIN SYNDROME [None]
  - FOETAL EXPOSURE DURING PREGNANCY [None]
